FAERS Safety Report 6453662-1 (Version None)
Quarter: 2009Q4

REPORT INFORMATION
  Report Type: 
  Country: None (occurrence: None)
  Receive Date: 20091124
  Receipt Date: 20091116
  Transmission Date: 20100525
  Serious: Yes (Hospitalization)
  Sender: FDA-Public Use
  Company Number: PHHO2009FR08670

PATIENT
  Sex: Female

DRUGS (2)
  1. RAD 666 RAD+TAB [Suspect]
     Indication: ENDOMETRIAL CANCER METASTATIC
     Dosage: 10 MG / DAY
     Route: 048
     Dates: start: 20090310, end: 20090709
  2. RAD 666 RAD+TAB [Suspect]
     Dosage: 10 MG / DAY
     Route: 048
     Dates: start: 20090730

REACTIONS (5)
  - DIARRHOEA [None]
  - DYSPEPSIA [None]
  - GASTROINTESTINAL DISORDER [None]
  - NAUSEA [None]
  - VOMITING [None]
